FAERS Safety Report 5831351-1 (Version None)
Quarter: 2008Q3

REPORT INFORMATION
  Report Type: 
  Country: None (occurrence: None)
  Receive Date: 20080801
  Receipt Date: 20080725
  Transmission Date: 20090109
  Serious: Yes (Other)
  Sender: FDA-Public Use
  Company Number: US-BOEHRINGER INGELHEIM GMBH, GERMANY-2008-BP-10246BP

PATIENT
  Age: 91 Year
  Sex: Female
  Weight: 59 kg

DRUGS (2)
  1. FLOMAX [Suspect]
     Indication: URINARY RETENTION
  2. LEVAQUIN [Concomitant]

REACTIONS (2)
  - BLINDNESS [None]
  - HALLUCINATION, VISUAL [None]
